FAERS Safety Report 8470131 (Version 6)
Quarter: 2016Q1

REPORT INFORMATION
  Report Type: Spontaneous
  Country: US (occurrence: US)
  Receive Date: 20120321
  Receipt Date: 20160212
  Transmission Date: 20160526
  Serious: Yes (Other)
  Sender: FDA-Public Use
  Company Number: US-GLAXOSMITHKLINE-A0970548A

PATIENT
  Age: 44 Year
  Sex: Male

DRUGS (10)
  1. LAMOTRIGINE TABLET [Suspect]
     Active Substance: LAMOTRIGINE
     Indication: SEIZURE
     Route: 048
     Dates: start: 2012
  2. ZINC [Concomitant]
     Active Substance: ZINC\ZINC CHLORIDE
  3. LAMOTRIGINE TABLET [Suspect]
     Active Substance: LAMOTRIGINE
     Indication: EPILEPSY
  4. GLUCOSAMINE [Concomitant]
     Active Substance: GLUCOSAMINE
  5. VIMPAT [Concomitant]
     Active Substance: LACOSAMIDE
  6. LAMICTAL [Concomitant]
     Active Substance: LAMOTRIGINE
     Dates: start: 2007
  7. LAMICTAL XR [Suspect]
     Active Substance: LAMOTRIGINE
     Indication: SEIZURE
     Route: 048
  8. LAMICTAL [Suspect]
     Active Substance: LAMOTRIGINE
     Indication: EPILEPSY
     Dosage: 150 MG, BID
     Route: 048
  9. TEMAZEPAM. [Concomitant]
     Active Substance: TEMAZEPAM
  10. MULTIVITAMIN [Concomitant]
     Active Substance: VITAMINS

REACTIONS (7)
  - Drug ineffective [Unknown]
  - Product substitution issue [Unknown]
  - Staring [Recovered/Resolved]
  - Road traffic accident [Unknown]
  - Seizure [Unknown]
  - Headache [Recovered/Resolved]
  - Adverse drug reaction [Unknown]

NARRATIVE: CASE EVENT DATE: 201203
